FAERS Safety Report 6291343-8 (Version None)
Quarter: 2009Q3

REPORT INFORMATION
  Report Type: 
  Country: None (occurrence: None)
  Receive Date: 20090728
  Receipt Date: 20090728
  Transmission Date: 20100115
  Serious: No
  Sender: FDA-Public Use
  Company Number: None

PATIENT
  Age: 53 Year
  Sex: Male
  Weight: 158.759 kg

DRUGS (1)
  1. SERTRALINE [Suspect]
     Indication: DRUG USE FOR UNKNOWN INDICATION
     Dosage: 100MG 1X DAY PO
     Route: 048
     Dates: start: 20080507, end: 20090727

REACTIONS (4)
  - DRUG HYPERSENSITIVITY [None]
  - INSOMNIA [None]
  - MENTAL IMPAIRMENT [None]
  - SCAR [None]
